FAERS Safety Report 25994135 (Version 1)
Quarter: 2025Q4

REPORT INFORMATION
  Report Type: Spontaneous
  Country: GB (occurrence: GB)
  Receive Date: 20251104
  Receipt Date: 20251104
  Transmission Date: 20260118
  Serious: Yes (Other)
  Sender: HELSINN HEALTHCARE
  Company Number: None

PATIENT
  Age: 39 Year
  Sex: Male

DRUGS (8)
  1. AKYNZEO (NETUPITANT\PALONOSETRON HYDROCHLORIDE) [Suspect]
     Active Substance: NETUPITANT\PALONOSETRON HYDROCHLORIDE
     Indication: Rectal cancer
     Dosage: 300 MILLIGRAM, UNKNOWN
     Route: 065
  2. DEXAMETHASONE [Concomitant]
     Active Substance: DEXAMETHASONE
     Dosage: UNK, UNKNOWN
  3. PEGFILGRASTIM [Concomitant]
     Active Substance: PEGFILGRASTIM
     Dosage: UNK, UNKNOWN
  4. BENZYDAMINE [Concomitant]
     Active Substance: BENZYDAMINE
     Dosage: UNK, UNKNOWN
  5. FLUOROURACIL [Concomitant]
     Active Substance: FLUOROURACIL
     Dosage: UNK, UNKNOWN
  6. LOPERAMIDE [Concomitant]
     Active Substance: LOPERAMIDE
     Dosage: UNK, UNKNOWN
  7. METOCLOPRAMIDE [Concomitant]
     Active Substance: METOCLOPRAMIDE
     Dosage: UNK, UNKNOWN
  8. OXALIPLATIN [Concomitant]
     Active Substance: OXALIPLATIN
     Dosage: UNK, UNKNOWN

REACTIONS (4)
  - Neuropathy peripheral [Unknown]
  - Muscle spasms [Unknown]
  - Muscle twitching [Unknown]
  - Off label use [Unknown]

NARRATIVE: CASE EVENT DATE: 20251023
